FAERS Safety Report 20594800 (Version 1)
Quarter: 2022Q1

REPORT INFORMATION
  Report Type: Spontaneous
  Country: US (occurrence: None)
  Receive Date: 20220314
  Receipt Date: 20220314
  Transmission Date: 20220423
  Serious: Yes (Hospitalization)
  Sender: FDA-Public Use
  Company Number: None

PATIENT
  Age: 7 Year
  Sex: Female

DRUGS (1)
  1. LUPRON DEPOT-PED [Suspect]
     Active Substance: LEUPROLIDE ACETATE
     Dosage: OTHER FREQUENCY : OTHER;?
     Route: 030
     Dates: start: 202202

REACTIONS (4)
  - Urticaria [None]
  - Injection site pain [None]
  - Injection site erythema [None]
  - Gait disturbance [None]

NARRATIVE: CASE EVENT DATE: 20220309
